FAERS Safety Report 25797120 (Version 2)
Quarter: 2025Q4

REPORT INFORMATION
  Report Type: Spontaneous
  Country: UY (occurrence: UY)
  Receive Date: 20250912
  Receipt Date: 20251027
  Transmission Date: 20260117
  Serious: Yes (Other)
  Sender: SANDOZ
  Company Number: UY-002147023-NVSC2025MX142027

PATIENT
  Age: 94 Year
  Sex: Female

DRUGS (1)
  1. EXELON [Suspect]
     Active Substance: RIVASTIGMINE TARTRATE
     Indication: Product used for unknown indication
     Dosage: 1 DF, QD,  18 MG
     Route: 062
     Dates: start: 20250423

REACTIONS (2)
  - Cerebrovascular accident [Unknown]
  - Embolism [Unknown]

NARRATIVE: CASE EVENT DATE: 20250801
